FAERS Safety Report 18841643 (Version 2)
Quarter: 2021Q1

REPORT INFORMATION
  Report Type: Spontaneous
  Country: US (occurrence: US)
  Receive Date: 20210204
  Receipt Date: 20210304
  Transmission Date: 20210419
  Serious: No
  Sender: FDA-Public Use
  Company Number: US-GLAXOSMITHKLINE-USCH2021002575

PATIENT
  Age: 45 Year
  Sex: Female

DRUGS (1)
  1. ADVIL LIQUI?GELS [Suspect]
     Active Substance: IBUPROFEN
     Indication: HEADACHE
     Dosage: UNK
     Dates: start: 20210128, end: 20210128

REACTIONS (2)
  - Product complaint [Unknown]
  - Poor quality product administered [Recovering/Resolving]

NARRATIVE: CASE EVENT DATE: 20210128
